FAERS Safety Report 9353988 (Version 1)
Quarter: 2013Q2

REPORT INFORMATION
  Report Type: Spontaneous
  Country: US (occurrence: US)
  Receive Date: 20130618
  Receipt Date: 20130618
  Transmission Date: 20140414
  Serious: Yes (Other)
  Sender: FDA-Public Use
  Company Number: 2013SP001696

PATIENT
  Age: 22 Year
  Sex: Female
  Weight: 50 kg

DRUGS (5)
  1. LATUDA [Suspect]
     Indication: PRODUCT USED FOR UNKNOWN INDICATION
     Route: 048
     Dates: start: 20130527, end: 20130608
  2. ZOLOFT [Suspect]
     Indication: ANXIETY
     Route: 048
     Dates: start: 20130527
  3. ZOLOFT [Suspect]
     Indication: PANIC ATTACK
     Route: 048
     Dates: start: 20130527
  4. XANAX [Concomitant]
     Indication: ANXIETY
     Route: 048
  5. XANAX [Concomitant]
     Indication: PANIC ATTACK
     Route: 048

REACTIONS (6)
  - Eye swelling [Recovering/Resolving]
  - Oedema mouth [Recovering/Resolving]
  - Amnesia [Unknown]
  - Palpitations [Recovering/Resolving]
  - Hypoaesthesia oral [Recovering/Resolving]
  - Somnolence [Unknown]
